FAERS Safety Report 6812655-2 (Version None)
Quarter: 2010Q3

REPORT INFORMATION
  Report Type: 
  Country: None (occurrence: None)
  Receive Date: 20100701
  Receipt Date: 20100623
  Transmission Date: 20110219
  Serious: Yes (Life-Threatening, Other)
  Sender: FDA-Public Use
  Company Number: DE-ROCHE-699149

PATIENT
  Sex: Male
  Weight: 62 kg

DRUGS (6)
  1. AVASTIN [Suspect]
     Route: 042
     Dates: start: 20091113, end: 20100318
  2. XELODA [Suspect]
     Dosage: DAY 1-14 OF A CYCLE OF 22 DAYS
     Route: 048
     Dates: start: 20091113, end: 20100318
  3. OXALIPLATIN [Concomitant]
     Dates: start: 20091101, end: 20091201
  4. TORSEMIDE [Concomitant]
     Indication: OEDEMA
     Route: 048
  5. IBUPROFEN [Concomitant]
     Indication: PAIN
     Route: 048
  6. CREON [Concomitant]
     Indication: PANCREATIC INSUFFICIENCY
     Route: 048

REACTIONS (2)
  - GASTROINTESTINAL NEOPLASM [None]
  - SMALL INTESTINAL PERFORATION [None]
